FAERS Safety Report 4505379-8 (Version None)
Quarter: 2004Q4

REPORT INFORMATION
  Report Type: 
  Country: None (occurrence: None)
  Receive Date: 20041116
  Receipt Date: 20041116
  Transmission Date: 20050328
  Serious: Yes (Other)
  Sender: FDA-Public Use
  Company Number: None

PATIENT
  Sex: Male
  Weight: 79.3795 kg

DRUGS (1)
  1. ZOLOFT [Suspect]
     Indication: DEPRESSION
     Dosage: 50MG  ORAL
     Route: 048
     Dates: start: 20020301, end: 20041116

REACTIONS (6)
  - DISORIENTATION [None]
  - HALLUCINATION [None]
  - IMPAIRED WORK ABILITY [None]
  - MUSCLE CRAMP [None]
  - TIC [None]
  - TINNITUS [None]
